FAERS Safety Report 21054966 (Version 4)
Quarter: 2022Q3

REPORT INFORMATION
  Report Type: Report from Study
  Country: US (occurrence: US)
  Receive Date: 20220707
  Receipt Date: 20220812
  Transmission Date: 20221027
  Serious: Yes (Death, Hospitalization, Other)
  Sender: FDA-Public Use
  Company Number: US-BRISTOL-MYERS SQUIBB COMPANY-2022-068603

PATIENT
  Age: 79 Year
  Sex: Male

DRUGS (12)
  1. NIVOLUMAB [Suspect]
     Active Substance: NIVOLUMAB
     Indication: Basal cell carcinoma
     Dosage: FLAT DOSE?PRIOR TO THE ONSET OF THE EVENTS, THE PATIENT RECEIVED HIS MOST RECENT DOSE OF STUDY THERA
     Route: 042
     Dates: start: 20210618
  2. METOPROLOL [Concomitant]
     Active Substance: METOPROLOL
     Indication: Product used for unknown indication
     Dosage: UNK?ONGOING
     Route: 048
     Dates: start: 2017
  3. ASPIRIN [Concomitant]
     Active Substance: ASPIRIN
     Indication: Product used for unknown indication
     Dosage: UNK?ONGOING
     Route: 048
     Dates: start: 2017
  4. ATORVASTATIN CALCIUM [Concomitant]
     Active Substance: ATORVASTATIN CALCIUM
     Indication: Product used for unknown indication
     Dosage: UNK?ONGOING
     Route: 048
     Dates: start: 2016
  5. METFORMIN [Concomitant]
     Active Substance: METFORMIN HYDROCHLORIDE
     Indication: Product used for unknown indication
     Dosage: UNK?ONGOING
     Route: 048
     Dates: start: 20210910
  6. ACETAMINOPHEN\HYDROCODONE [Concomitant]
     Active Substance: ACETAMINOPHEN\HYDROCODONE
     Indication: Product used for unknown indication
     Dosage: UNK?ONGOING
     Route: 048
     Dates: start: 20210508
  7. ACETAMINOPHEN\HYDROCODONE [Concomitant]
     Active Substance: ACETAMINOPHEN\HYDROCODONE
     Dosage: UNK?ONGOING
     Route: 048
     Dates: start: 20211119
  8. GABAPENTIN [Concomitant]
     Active Substance: GABAPENTIN
     Indication: Product used for unknown indication
     Dosage: UNK?ONGOING
     Route: 048
     Dates: start: 20210422
  9. MUCINEX [Concomitant]
     Active Substance: GUAIFENESIN
     Indication: Product used for unknown indication
     Dosage: UNK?ONGOING
     Route: 048
     Dates: start: 20161007
  10. OXYMETAZOLINE HYDROCHLORIDE [Concomitant]
     Active Substance: OXYMETAZOLINE HYDROCHLORIDE
     Indication: Product used for unknown indication
     Dosage: UNK?ONGOING
     Route: 048
     Dates: start: 20201210
  11. FUROSEMIDE [Concomitant]
     Active Substance: FUROSEMIDE
     Indication: Product used for unknown indication
     Dosage: UNK?ONGOING
     Route: 048
     Dates: start: 20211119
  12. PREDNISONE [Concomitant]
     Active Substance: PREDNISONE
     Indication: Product used for unknown indication
     Dosage: UNK?ONGOING
     Route: 048
     Dates: start: 20220527

REACTIONS (3)
  - Acute kidney injury [Unknown]
  - Duodenitis [Unknown]
  - Sepsis [Fatal]

NARRATIVE: CASE EVENT DATE: 20220630
